FAERS Safety Report 7346392-5 (Version None)
Quarter: 2011Q1

REPORT INFORMATION
  Report Type: 
  Country: None (occurrence: None)
  Receive Date: 20110311
  Receipt Date: 20110302
  Transmission Date: 20110831
  Serious: Yes (Hospitalization)
  Sender: FDA-Public Use
  Company Number: JP-BAYER-200914691BYL

PATIENT
  Sex: Male

DRUGS (3)
  1. NEXAVAR [Suspect]
     Indication: HEPATIC NEOPLASM MALIGNANT
     Route: 048
     Dates: start: 20090826, end: 20091016
  2. LAXOBERON [Concomitant]
     Indication: CONSTIPATION
     Dosage: 5 ML (DAILY DOSE), , ORAL
     Route: 048
     Dates: start: 20091017
  3. NEXAVAR [Suspect]
     Dosage: 400 MG (DAILY DOSE), , ORAL
     Route: 048
     Dates: start: 20091107

REACTIONS (3)
  - RHABDOMYOLYSIS [None]
  - CONSTIPATION [None]
  - HEPATIC ENCEPHALOPATHY [None]
